FAERS Safety Report 9171670 (Version 1)
Quarter: 2013Q1

REPORT INFORMATION
  Report Type: Spontaneous
  Country: US (occurrence: US)
  Receive Date: 20130319
  Receipt Date: 20130319
  Transmission Date: 20140127
  Serious: No
  Sender: FDA-Public Use
  Company Number: US-TEVA-390174USA

PATIENT
  Sex: Male

DRUGS (1)
  1. TREANDA [Suspect]

REACTIONS (4)
  - Paraesthesia [Unknown]
  - Hypoaesthesia [Unknown]
  - Extravasation [Unknown]
  - Local swelling [Unknown]
